FAERS Safety Report 12288953 (Version 1)
Quarter: 2016Q2

REPORT INFORMATION
  Report Type: Spontaneous
  Country: US (occurrence: US)
  Receive Date: 20160421
  Receipt Date: 20160421
  Transmission Date: 20160815
  Serious: Yes (Other)
  Sender: FDA-Public Use
  Company Number: US-HOSPIRA-2849127

PATIENT
  Age: 61 Year
  Sex: Male

DRUGS (2)
  1. VANCOMYCIN HYDROCHLORIDE. [Suspect]
     Active Substance: VANCOMYCIN HYDROCHLORIDE
     Indication: CELLULITIS
     Route: 042
  2. ZOSYN [Concomitant]
     Active Substance: PIPERACILLIN SODIUM\TAZOBACTAM SODIUM
     Indication: CELLULITIS
     Dosage: 3.375 UOM NOT REPORTED
     Route: 042
     Dates: start: 20150415, end: 20150420

REACTIONS (2)
  - Blood creatinine increased [Not Recovered/Not Resolved]
  - Antibiotic level above therapeutic [Not Recovered/Not Resolved]

NARRATIVE: CASE EVENT DATE: 20150421
